FAERS Safety Report 12805413 (Version 1)
Quarter: 2016Q4

REPORT INFORMATION
  Report Type: Report from Study
  Country: US (occurrence: US)
  Receive Date: 20161004
  Receipt Date: 20161004
  Transmission Date: 20170207
  Serious: Yes (Other)
  Sender: FDA-Public Use
  Company Number: US-ROCHE-1835867

PATIENT
  Age: 65 Year
  Sex: Female
  Weight: 63.5 kg

DRUGS (25)
  1. BEVACIZUMAB [Suspect]
     Active Substance: BEVACIZUMAB
     Dosage: COURSE ID 5
     Route: 042
     Dates: start: 20140102
  2. BEVACIZUMAB [Suspect]
     Active Substance: BEVACIZUMAB
     Dosage: COURSE ID 11
     Route: 042
     Dates: start: 20140508
  3. VELIPARIB [Suspect]
     Active Substance: VELIPARIB
     Dosage: COURSE ID 4
     Route: 048
     Dates: start: 20131212
  4. BEVACIZUMAB [Suspect]
     Active Substance: BEVACIZUMAB
     Dosage: COURSE ID 14
     Route: 042
     Dates: start: 20140710
  5. BEVACIZUMAB [Suspect]
     Active Substance: BEVACIZUMAB
     Dosage: COURSE ID 12
     Route: 042
     Dates: start: 20140529
  6. BEVACIZUMAB [Suspect]
     Active Substance: BEVACIZUMAB
     Dosage: COURSE ID 16
     Route: 042
     Dates: start: 20140821
  7. BEVACIZUMAB [Suspect]
     Active Substance: BEVACIZUMAB
     Dosage: COURSE ID 7
     Route: 042
     Dates: start: 20140213
  8. BEVACIZUMAB [Suspect]
     Active Substance: BEVACIZUMAB
     Dosage: COURSE ID 10
     Route: 042
     Dates: start: 20140417
  9. BEVACIZUMAB [Suspect]
     Active Substance: BEVACIZUMAB
     Dosage: COURSE ID 13
     Route: 042
     Dates: start: 20140619
  10. BEVACIZUMAB [Suspect]
     Active Substance: BEVACIZUMAB
     Dosage: COURSE ID 19
     Route: 042
     Dates: start: 20141024
  11. VELIPARIB [Suspect]
     Active Substance: VELIPARIB
     Dosage: COURSE ID 5
     Route: 048
     Dates: start: 20140102
  12. BEVACIZUMAB [Suspect]
     Active Substance: BEVACIZUMAB
     Indication: OVARIAN EPITHELIAL CANCER
     Dosage: COURSE ID 2
     Route: 042
     Dates: start: 20131031
  13. BEVACIZUMAB [Suspect]
     Active Substance: BEVACIZUMAB
     Dosage: COURSE ID 3
     Route: 042
     Dates: start: 20131121
  14. BEVACIZUMAB [Suspect]
     Active Substance: BEVACIZUMAB
     Dosage: COURSE ID 15
     Route: 042
     Dates: start: 20140731
  15. BEVACIZUMAB [Suspect]
     Active Substance: BEVACIZUMAB
     Dosage: COURSE ID 8
     Route: 042
     Dates: start: 20140306
  16. BEVACIZUMAB [Suspect]
     Active Substance: BEVACIZUMAB
     Dosage: COURSE ID 9
     Route: 042
     Dates: start: 20140327
  17. BEVACIZUMAB [Suspect]
     Active Substance: BEVACIZUMAB
     Dosage: COURSE ID 20
     Route: 042
     Dates: start: 20141114
  18. VELIPARIB [Suspect]
     Active Substance: VELIPARIB
     Indication: OVARIAN EPITHELIAL CANCER
     Dosage: COURSE ID 1
     Route: 048
     Dates: start: 20131010
  19. VELIPARIB [Suspect]
     Active Substance: VELIPARIB
     Dosage: COURSE ID 3
     Route: 048
     Dates: start: 20131121
  20. VELIPARIB [Suspect]
     Active Substance: VELIPARIB
     Dosage: COURSE ID 6
     Route: 048
     Dates: start: 20140123
  21. BEVACIZUMAB [Suspect]
     Active Substance: BEVACIZUMAB
     Dosage: COURSE ID 4
     Route: 042
     Dates: start: 20131212
  22. BEVACIZUMAB [Suspect]
     Active Substance: BEVACIZUMAB
     Dosage: COURSE ID 6
     Route: 042
     Dates: start: 20140123
  23. BEVACIZUMAB [Suspect]
     Active Substance: BEVACIZUMAB
     Dosage: COURSE ID 17
     Route: 042
     Dates: start: 20140912
  24. BEVACIZUMAB [Suspect]
     Active Substance: BEVACIZUMAB
     Dosage: COURSE ID 18
     Route: 042
     Dates: start: 20131031
  25. VELIPARIB [Suspect]
     Active Substance: VELIPARIB
     Dosage: COURSE ID 2
     Route: 048
     Dates: start: 20131031

REACTIONS (2)
  - Neutrophil count decreased [Unknown]
  - Anaemia [Unknown]
